FAERS Safety Report 14356335 (Version 1)
Quarter: 2018Q1

REPORT INFORMATION
  Report Type: Spontaneous
  Country: US (occurrence: US)
  Receive Date: 20180105
  Receipt Date: 20180105
  Transmission Date: 20180509
  Serious: No
  Sender: FDA-Public Use
  Company Number: US-ALLERGAN-1730302US

PATIENT
  Age: 37 Year
  Sex: Female

DRUGS (3)
  1. KYBELLA [Suspect]
     Active Substance: DEOXYCHOLIC ACID
     Indication: PRODUCT USED FOR UNKNOWN INDICATION
     Dosage: 3.2 ML, SINGLE
     Route: 058
     Dates: start: 20160620, end: 20160620
  2. KYBELLA [Suspect]
     Active Substance: DEOXYCHOLIC ACID
     Dosage: 3 ML, SINGLE
     Route: 058
     Dates: start: 20160810, end: 20160810
  3. KYBELLA [Suspect]
     Active Substance: DEOXYCHOLIC ACID
     Dosage: 5 ML, SINGLE
     Route: 058
     Dates: start: 20170303, end: 20170303

REACTIONS (3)
  - Soft tissue disorder [Unknown]
  - Injection site fibrosis [Unknown]
  - Drug ineffective [Unknown]
